FAERS Safety Report 8443175-X (Version None)
Quarter: 2012Q2

REPORT INFORMATION
  Report Type: 
  Country: None (occurrence: None)
  Receive Date: 20120616
  Receipt Date: 20120605
  Transmission Date: 20120825
  Serious: Yes (Hospitalization)
  Sender: FDA-Public Use
  Company Number: JP-VERTEX PHARMACEUTICALS INC.-AE-2012-006320

PATIENT
  Age: 64 Year
  Sex: Male

DRUGS (8)
  1. RIBAVIRIN [Concomitant]
     Indication: HEPATITIS C
     Route: 048
     Dates: start: 20120228
  2. RIBAVIRIN [Concomitant]
     Route: 048
     Dates: start: 20120501, end: 20120521
  3. TELAVIC (TELAPREVIR) [Suspect]
     Indication: HEPATITIS C
     Route: 048
     Dates: start: 20120228, end: 20120510
  4. PEGINTERFERON ALFA-2B [Concomitant]
     Indication: HEPATITIS C
     Route: 051
     Dates: start: 20120228
  5. JANUVIA [Concomitant]
     Route: 048
  6. RIBAVIRIN [Concomitant]
     Route: 048
     Dates: start: 20120522
  7. RIBAVIRIN [Concomitant]
     Route: 048
     Dates: start: 20120417, end: 20120430
  8. AMARYL [Concomitant]
     Route: 048

REACTIONS (3)
  - RENAL IMPAIRMENT [None]
  - DECREASED APPETITE [None]
  - ANAEMIA [None]
